FAERS Safety Report 14177251 (Version 5)
Quarter: 2018Q1

REPORT INFORMATION
  Report Type: Spontaneous
  Country: US (occurrence: US)
  Receive Date: 20171110
  Receipt Date: 20180119
  Transmission Date: 20180508
  Serious: Yes (Hospitalization)
  Sender: FDA-Public Use
  Company Number: US-PFIZER INC-2017483417

PATIENT

DRUGS (3)
  1. INSULIN GLARGINE [Concomitant]
     Active Substance: INSULIN GLARGINE
     Indication: TYPE 2 DIABETES MELLITUS
     Dosage: 18 IU, DAILY
     Dates: start: 20171101
  2. DAPTOMYCIN. [Suspect]
     Active Substance: DAPTOMYCIN
     Indication: INFECTION
     Dosage: 1000 MG, DAILY
     Route: 042
     Dates: start: 20171103, end: 20171106
  3. DAPTOMYCIN. [Suspect]
     Active Substance: DAPTOMYCIN
     Dosage: UNK
     Dates: start: 20171104

REACTIONS (9)
  - Nausea [Recovered/Resolved]
  - Diarrhoea [Recovered/Resolved]
  - Tachycardia [Unknown]
  - Pyrexia [Recovered/Resolved]
  - Hypotension [Unknown]
  - Dyspnoea [Unknown]
  - Chills [Unknown]
  - Vomiting [Recovered/Resolved]
  - Vaginal haemorrhage [Recovered/Resolved]

NARRATIVE: CASE EVENT DATE: 20171104
